FAERS Safety Report 8802624 (Version 1)
Quarter: 2012Q4

REPORT INFORMATION
  Report Type: 
  Country: DE (occurrence: DE)
  Receive Date: 20120921
  Receipt Date: 20120921
  Transmission Date: 20130627
  Serious: Yes (Hospitalization, Disabling)
  Sender: FDA-Public Use
  Company Number: DE-TEVA-360409USA

PATIENT
  Sex: Male

DRUGS (2)
  1. TREANDA [Suspect]
     Indication: PLASMACYTOMA
     Route: 042
     Dates: start: 20120806
  2. PREDNISOLONE [Suspect]
     Indication: PLASMACYTOMA
     Route: 042
     Dates: start: 20120806

REACTIONS (2)
  - Muscle spasticity [Unknown]
  - Diplegia [Unknown]
